FAERS Safety Report 17896829 (Version 5)
Quarter: 2020Q3

REPORT INFORMATION
  Report Type: Spontaneous
  Country: US (occurrence: US)
  Receive Date: 20200615
  Receipt Date: 20200810
  Transmission Date: 20201103
  Serious: Yes (Other)
  Sender: FDA-Public Use
  Company Number: US-OTSUKA-2020_013371

PATIENT
  Age: 23 Year
  Sex: Female

DRUGS (4)
  1. ABILIFY [Suspect]
     Active Substance: ARIPIPRAZOLE
     Indication: DEPRESSION
     Dosage: UNK
     Route: 048
     Dates: start: 202004
  2. PROZAC [Suspect]
     Active Substance: FLUOXETINE HYDROCHLORIDE
     Indication: DEPRESSION
     Dosage: UNK
     Route: 065
     Dates: end: 2020
  3. ABILIFY MAINTENA [Suspect]
     Active Substance: ARIPIPRAZOLE
     Indication: MAJOR DEPRESSION
     Dosage: 300 MG, INJECTED ONE TIME
     Route: 030
     Dates: start: 20200409, end: 20200409
  4. HALDOL [Concomitant]
     Active Substance: HALOPERIDOL
     Indication: DEPRESSION
     Dosage: UNK
     Route: 065

REACTIONS (21)
  - Parkinsonism [Not Recovered/Not Resolved]
  - Underdose [Unknown]
  - Product use in unapproved indication [Unknown]
  - Hyposmia [Not Recovered/Not Resolved]
  - Anorgasmia [Unknown]
  - Miosis [Not Recovered/Not Resolved]
  - Pharyngeal swelling [Unknown]
  - Libido decreased [Unknown]
  - Drug monitoring procedure incorrectly performed [Unknown]
  - Neuropathy peripheral [Not Recovered/Not Resolved]
  - Pupil fixed [Not Recovered/Not Resolved]
  - Neuroleptic malignant syndrome [Unknown]
  - Hyperphagia [Unknown]
  - Hypogeusia [Not Recovered/Not Resolved]
  - Hypoaesthesia [Not Recovered/Not Resolved]
  - Parosmia [Not Recovered/Not Resolved]
  - Confusional state [Recovered/Resolved]
  - Weight increased [Unknown]
  - Vision blurred [Not Recovered/Not Resolved]
  - Sexual dysfunction [Recovered/Resolved]
  - Trichorrhexis [Unknown]

NARRATIVE: CASE EVENT DATE: 2020
